FAERS Safety Report 11985755 (Version 4)
Quarter: 2017Q1

REPORT INFORMATION
  Report Type: Report from Study
  Country: FR (occurrence: FR)
  Receive Date: 20160202
  Receipt Date: 20170307
  Transmission Date: 20170428
  Serious: Yes (Hospitalization)
  Sender: FDA-Public Use
  Company Number: FR-ROCHE-1699549

PATIENT
  Age: 60 Year
  Sex: Male
  Weight: 49 kg

DRUGS (9)
  1. BEVACIZUMAB [Suspect]
     Active Substance: BEVACIZUMAB
     Indication: NON-SMALL CELL LUNG CANCER
     Dosage: MOST RECENT DOSE PRIOR TO THE EVENT: 12/JAN/2016
     Route: 042
     Dates: start: 20160112
  2. PACLITAXEL. [Suspect]
     Active Substance: PACLITAXEL
     Indication: NON-SMALL CELL LUNG CANCER
     Dosage: MOST RECENT DOSE PRIOR TO THE EVENT: 12/JAN/2016
     Route: 042
     Dates: start: 20160112
  3. ZOPICLONE [Concomitant]
     Active Substance: ZOPICLONE
     Indication: INSOMNIA
     Route: 065
     Dates: start: 2015
  4. CARBOPLATIN. [Suspect]
     Active Substance: CARBOPLATIN
     Indication: NON-SMALL CELL LUNG CANCER
     Dosage: MOST RECENT DOSE PRIOR TO THE EVENT: 12/JAN/2016
     Route: 042
     Dates: start: 20160112
  5. ULTIBRO [Concomitant]
     Active Substance: GLYCOPYRRONIUM\INDACATEROL
     Indication: CHRONIC OBSTRUCTIVE PULMONARY DISEASE
     Route: 065
     Dates: start: 201509
  6. ATEZOLIZUMAB [Suspect]
     Active Substance: ATEZOLIZUMAB
     Indication: NON-SMALL CELL LUNG CANCER
     Dosage: MOST RECENT DOSE PRIOR TO THE EVENT: 12/JAN/2016
     Route: 042
     Dates: start: 20160112
  7. SKENAN [Concomitant]
     Active Substance: MORPHINE SULFATE
     Indication: CHEST PAIN
     Route: 065
     Dates: start: 20160106
  8. DOLIPRANE [Concomitant]
     Active Substance: ACETAMINOPHEN
     Indication: CHEST PAIN
     Route: 065
     Dates: start: 20160106
  9. ACTISKENAN [Concomitant]
     Active Substance: MORPHINE SULFATE
     Indication: CHEST PAIN
     Route: 065
     Dates: start: 20160106

REACTIONS (1)
  - Pyopneumothorax [Recovered/Resolved]

NARRATIVE: CASE EVENT DATE: 20160121
